FAERS Safety Report 12482444 (Version 1)
Quarter: 2016Q2

REPORT INFORMATION
  Report Type: Spontaneous
  Country: US (occurrence: US)
  Receive Date: 20160620
  Receipt Date: 20160620
  Transmission Date: 20160815
  Serious: Yes (Other)
  Sender: FDA-Public Use
  Company Number: US-MYLANLABS-2016M1025417

PATIENT

DRUGS (1)
  1. LOPERAMIDE [Suspect]
     Active Substance: LOPERAMIDE
     Indication: PRODUCT USED FOR UNKNOWN INDICATION
     Dosage: 32MG DAILY
     Route: 065

REACTIONS (4)
  - Drug abuse [Unknown]
  - Unmasking of previously unidentified disease [Unknown]
  - Intentional overdose [Unknown]
  - Brugada syndrome [Unknown]
